FAERS Safety Report 5935480-3 (Version None)
Quarter: 2008Q4

REPORT INFORMATION
  Report Type: 
  Country: None (occurrence: None)
  Receive Date: 20081028
  Receipt Date: 20081020
  Transmission Date: 20090506
  Serious: Yes (Other)
  Sender: FDA-Public Use
  Company Number: 2008SP017266

PATIENT
  Age: 54 Year
  Sex: Female

DRUGS (5)
  1. PEG-INTRON [Suspect]
     Indication: HEPATITIS C
     Dosage: 150 MCG;QW
     Dates: start: 20071122
  2. RIBAVIRIN [Suspect]
     Indication: HEPATITIS C
     Dosage: 1600 MG;QD;PO
     Route: 048
     Dates: start: 20071122
  3. PROZAC [Concomitant]
  4. RISPERDAL [Concomitant]
  5. CYMBALTA [Concomitant]

REACTIONS (11)
  - CONDITION AGGRAVATED [None]
  - DEATH OF RELATIVE [None]
  - DEPRESSION [None]
  - FEELING ABNORMAL [None]
  - GLOSSODYNIA [None]
  - HEPATIC CIRRHOSIS [None]
  - LABORATORY TEST ABNORMAL [None]
  - LIVER INJURY [None]
  - PRURITUS [None]
  - TONGUE BLISTERING [None]
  - TREATMENT FAILURE [None]
